FAERS Safety Report 25950557 (Version 1)
Quarter: 2025Q4

REPORT INFORMATION
  Report Type: Report from Study
  Country: GB (occurrence: GB)
  Receive Date: 20251023
  Receipt Date: 20251023
  Transmission Date: 20260118
  Serious: Yes (Hospitalization, Other)
  Sender: ABBVIE
  Company Number: GB-ABBVIE-6508952

PATIENT
  Age: 78 Year
  Sex: Female

DRUGS (7)
  1. CARBIDOPA\LEVODOPA [Suspect]
     Active Substance: CARBIDOPA\LEVODOPA
     Indication: Parkinson^s disease
     Dosage: MD= 3.0, DAY CR= 4.0, NIGHT CR= 4.0, ED= 2.0, FORM STRENGTH: 20MG/5MG
     Route: 050
  2. CARBIDOPA\LEVODOPA [Suspect]
     Active Substance: CARBIDOPA\LEVODOPA
  3. BENSERAZIDE HYDROCHLORIDE\LEVODOPA [Concomitant]
     Active Substance: BENSERAZIDE HYDROCHLORIDE\LEVODOPA
     Indication: Parkinson^s disease
     Dosage: 100/25 X2 @2200
     Route: 048
  4. CLONAZEPAM [Concomitant]
     Active Substance: CLONAZEPAM
     Indication: Anxiety
     Dosage: 500MCGS X1 @2200
     Route: 048
  5. METHOCARBAMOL [Concomitant]
     Active Substance: METHOCARBAMOL
     Indication: Muscle spasms
     Dosage: 750 MGS X1OD PRN
     Route: 048
  6. LACTULOSE [Concomitant]
     Active Substance: LACTULOSE
     Indication: Constipation
     Dosage: 15MLS X1 BD
     Route: 048
  7. SENNA [Concomitant]
     Active Substance: SENNOSIDES
     Indication: Constipation
     Dosage: 15MGS X1 @2200
     Route: 048

REACTIONS (17)
  - Faecaloma [Recovered/Resolved]
  - Stoma site infection [Recovered/Resolved]
  - Fall [Unknown]
  - Constipation [Unknown]
  - Muscle rigidity [Not Recovered/Not Resolved]
  - Psychotic disorder [Recovered/Resolved]
  - Dyskinesia [Not Recovered/Not Resolved]
  - Device issue [Unknown]
  - Pain in extremity [Unknown]
  - Anxiety [Not Recovered/Not Resolved]
  - Depressed mood [Not Recovered/Not Resolved]
  - Body temperature fluctuation [Unknown]
  - Weight decreased [Unknown]
  - Loss of consciousness [Unknown]
  - Confusional state [Unknown]
  - Tremor [Not Recovered/Not Resolved]
  - On and off phenomenon [Not Recovered/Not Resolved]

NARRATIVE: CASE EVENT DATE: 20250101
